FAERS Safety Report 5370171-1 (Version None)
Quarter: 2007Q2

REPORT INFORMATION
  Report Type: 
  Country: None (occurrence: None)
  Receive Date: 20070613
  Receipt Date: 20070413
  Transmission Date: 20071010
  Serious: No
  Sender: FDA-Public Use
  Company Number: IND-AE-07-SAN-017

PATIENT
  Age: 69 Year
  Sex: Female

DRUGS (3)
  1. SANCTURA [Suspect]
     Indication: BLADDER DISORDER
     Dosage: 20MG - BID - ORAL
     Route: 048
     Dates: start: 20061101, end: 20070301
  2. VERAPAMIL [Concomitant]
  3. ALLOPURINOL [Concomitant]

REACTIONS (1)
  - ARTHRALGIA [None]
